FAERS Safety Report 16442861 (Version 1)
Quarter: 2019Q2

REPORT INFORMATION
  Report Type: Report from Study
  Country: US (occurrence: US)
  Receive Date: 20190617
  Receipt Date: 20190617
  Transmission Date: 20190711
  Serious: Yes (Hospitalization)
  Sender: FDA-Public Use
  Company Number: US-ACTELION-A-NJ2018-168832

PATIENT
  Age: 70 Year
  Sex: Female
  Weight: 94.79 kg

DRUGS (3)
  1. UPTRAVI [Suspect]
     Active Substance: SELEXIPAG
     Indication: PULMONARY ARTERIAL HYPERTENSION
     Dosage: 1600 MCG, BID
     Route: 048
  2. UPTRAVI [Suspect]
     Active Substance: SELEXIPAG
     Dosage: 1400 MCG, BID
     Route: 048
  3. ADEMPAS [Concomitant]
     Active Substance: RIOCIGUAT

REACTIONS (4)
  - Dizziness [Unknown]
  - Hospitalisation [Unknown]
  - Colonoscopy [Recovered/Resolved]
  - Polyp [Not Recovered/Not Resolved]

NARRATIVE: CASE EVENT DATE: 20190528
